FAERS Safety Report 9917196 (Version 1)
Quarter: 2014Q1

REPORT INFORMATION
  Report Type: Spontaneous
  Country: US (occurrence: US)
  Receive Date: 20140221
  Receipt Date: 20140221
  Transmission Date: 20141002
  Serious: Yes (Other)
  Sender: FDA-Public Use
  Company Number: US-PFIZER INC-2014050368

PATIENT
  Age: 58 Year
  Sex: Female
  Weight: 53.52 kg

DRUGS (4)
  1. LYRICA [Suspect]
     Indication: NEUROPATHY PERIPHERAL
     Dosage: 50 MG, 3X/DAY
     Route: 048
  2. LYRICA [Suspect]
     Indication: NERVE INJURY
  3. MORPHINE [Concomitant]
     Indication: BACK PAIN
     Dosage: 30 MG, 3X/DAY
  4. MORPHINE [Concomitant]
     Indication: PAIN IN EXTREMITY

REACTIONS (2)
  - Abasia [Unknown]
  - Drug ineffective for unapproved indication [Unknown]
